FAERS Safety Report 4736139-0 (Version None)
Quarter: 2005Q3

REPORT INFORMATION
  Report Type: 
  Country: None (occurrence: None)
  Receive Date: 20050728
  Receipt Date: 20050601
  Transmission Date: 20060218
  Serious: Yes (Other)
  Sender: FDA-Public Use
  Company Number: 200511279US

PATIENT
  Age: 45 Year
  Sex: Female
  Weight: 136 kg

DRUGS (6)
  1. KETEK [Suspect]
     Indication: SINUSITIS
     Dosage: 800 MG/DAY
     Dates: start: 20050208, end: 20050212
  2. PREVACID [Concomitant]
  3. ZYRTEC [Concomitant]
  4. MONTELUKAST SODIUM [Concomitant]
  5. PARACETAMOL, DEXTROPROPOXYPHENE NAPSILATE (DARVOCET-N) [Concomitant]
  6. LEVOTHYROXINE SODIUM [Concomitant]

REACTIONS (6)
  - ABDOMINAL DISTENSION [None]
  - ABDOMINAL PAIN [None]
  - ASPARTATE AMINOTRANSFERASE INCREASED [None]
  - HEADACHE [None]
  - HEPATIC PAIN [None]
  - RENAL PAIN [None]
